FAERS Safety Report 8719615 (Version 2)
Quarter: 2012Q4

REPORT INFORMATION
  Report Type: Report from Study
  Country: US (occurrence: US)
  Receive Date: 20120813
  Receipt Date: 20120828
  Transmission Date: 20130627
  Serious: Yes (Other)
  Sender: FDA-Public Use
  Company Number: US-JNJFOC-20120803230

PATIENT
  Age: 39 Year
  Sex: Female
  Weight: 77.11 kg

DRUGS (1)
  1. REMICADE [Suspect]
     Indication: CROHN^S DISEASE
     Route: 042
     Dates: start: 20120717, end: 20120717

REACTIONS (11)
  - Urinary incontinence [Recovering/Resolving]
  - Headache [Recovering/Resolving]
  - Hypokinesia [Recovering/Resolving]
  - Morbid thoughts [Recovering/Resolving]
  - Influenza [Recovered/Resolved]
  - Lupus-like syndrome [Recovered/Resolved]
  - Malaise [Recovering/Resolving]
  - Arthralgia [Recovered/Resolved]
  - Pyrexia [Recovered/Resolved]
  - Fatigue [Recovered/Resolved]
  - Rash [Recovered/Resolved]
